FAERS Safety Report 8187285-3 (Version None)
Quarter: 2012Q1

REPORT INFORMATION
  Report Type: 
  Country: None (occurrence: None)
  Receive Date: 20120306
  Receipt Date: 20120227
  Transmission Date: 20120608
  Serious: Yes (Hospitalization)
  Sender: FDA-Public Use
  Company Number: US-ROCHE-724847

PATIENT
  Sex: Male
  Weight: 77.6 kg

DRUGS (4)
  1. AVASTIN [Suspect]
     Indication: COLORECTAL CANCER METASTATIC
     Dosage: LAST DOSE PRIOR TO SAE: 14 JULY 2010
     Route: 042
     Dates: start: 20100623, end: 20100806
  2. EVEROLIMUS [Suspect]
     Indication: COLORECTAL CANCER METASTATIC
     Dosage: LAST DOSE PRIOR TO SAE: 22 AUGUST 2010
     Route: 048
     Dates: start: 20100623, end: 20100822
  3. XELODA [Suspect]
     Indication: COLORECTAL CANCER METASTATIC
     Dosage: LAST DOSE PRIOR TO SAE: 20 AUGUST 2010
     Route: 048
     Dates: start: 20100623, end: 20100820
  4. OXALIPLATIN [Suspect]
     Indication: COLORECTAL CANCER METASTATIC
     Dosage: LAST DOSE PRIOR TO SAE: 06 AUGUST 2010
     Route: 042
     Dates: start: 20100623, end: 20100806

REACTIONS (1)
  - FAILURE TO THRIVE [None]
